FAERS Safety Report 12421930 (Version 2)
Quarter: 2016Q2

REPORT INFORMATION
  Report Type: Spontaneous
  Country: US (occurrence: US)
  Receive Date: 20160531
  Receipt Date: 20160615
  Transmission Date: 20160815
  Serious: No
  Sender: FDA-Public Use
  Company Number: US-MISSION PHARMACAL COMPANY-1052977

PATIENT
  Age: 47 Year
  Sex: Female

DRUGS (1)
  1. THIOLA [Suspect]
     Active Substance: TIOPRONIN
     Indication: NEPHROLITHIASIS
     Route: 065
     Dates: start: 20150808

REACTIONS (5)
  - Fatigue [Unknown]
  - Nephrolithiasis [Unknown]
  - Drug dose omission [Unknown]
  - Rash generalised [Unknown]
  - Platelet count decreased [Unknown]
